FAERS Safety Report 5594057-2 (Version None)
Quarter: 2008Q1

REPORT INFORMATION
  Report Type: 
  Country: None (occurrence: None)
  Receive Date: 20080114
  Receipt Date: 20071231
  Transmission Date: 20080703
  Serious: Yes (Other)
  Sender: FDA-Public Use
  Company Number: 2008AL000079

PATIENT
  Age: 50 Year
  Sex: Female

DRUGS (8)
  1. DICLOFENAC SODIUM [Suspect]
     Indication: ARTHRITIS
     Dosage: 50 MG; TID; PO
     Route: 048
     Dates: start: 20070601, end: 20071212
  2. TOLTERODINE TARTRATE [Concomitant]
  3. CITALOPRAM [Concomitant]
  4. CO-CODAMOL [Concomitant]
  5. ALBUTEROL [Concomitant]
  6. MONTELUKAST SODIUM [Concomitant]
  7. SYMBICORT [Concomitant]
  8. SELECTIVE SEROTONIN REUPTAKE INHIBITOR [Concomitant]

REACTIONS (2)
  - HAEMATEMESIS [None]
  - VAGINAL DISCHARGE [None]
